FAERS Safety Report 9007351 (Version 1)
Quarter: 2013Q1

REPORT INFORMATION
  Report Type: Spontaneous
  Country: US (occurrence: US)
  Receive Date: 20130110
  Receipt Date: 20130110
  Transmission Date: 20140127
  Serious: Yes (Other)
  Sender: FDA-Public Use
  Company Number: US-009507513-1301USA001646

PATIENT
  Age: 37 Year
  Sex: Female

DRUGS (4)
  1. MONTELUKAST SODIUM [Suspect]
  2. DEXAMETHASONE [Concomitant]
     Indication: OBLITERATIVE BRONCHIOLITIS
  3. CLARITHROMYCIN [Suspect]
     Dosage: 250 MG, UNK
  4. ZITHROMAX [Suspect]
     Dosage: 250 MG, UNK

REACTIONS (3)
  - Paraesthesia [Unknown]
  - Myalgia [Unknown]
  - Hypocalcaemia [Unknown]
